FAERS Safety Report 9202638 (Version 2)
Quarter: 2014Q1

REPORT INFORMATION
  Report Type: Spontaneous
  Country: US (occurrence: US)
  Receive Date: 20130401
  Receipt Date: 20140129
  Transmission Date: 20141002
  Serious: Yes (Hospitalization, Other)
  Sender: FDA-Public Use
  Company Number: US-BAYER-2013-039211

PATIENT
  Age: 16 Year
  Sex: Female

DRUGS (5)
  1. YAZ [Suspect]
     Dosage: UNK
     Dates: start: 200706, end: 200912
  2. YASMIN [Suspect]
     Dosage: UNK
     Dates: start: 200706, end: 200912
  3. OCELLA [Suspect]
     Dosage: UNK
     Dates: start: 200706, end: 200912
  4. GIANVI [Suspect]
     Dosage: UNK
     Dates: start: 200706, end: 200912
  5. DDAVP [Concomitant]

REACTIONS (6)
  - Cholecystectomy [None]
  - Cholecystitis chronic [None]
  - Injury [None]
  - Pain [None]
  - Anxiety [None]
  - Anhedonia [None]
